FAERS Safety Report 25435163 (Version 1)
Quarter: 2025Q2

REPORT INFORMATION
  Report Type: Spontaneous
  Country: US (occurrence: US)
  Receive Date: 20250613
  Receipt Date: 20250613
  Transmission Date: 20250716
  Serious: Yes (Death)
  Sender: AMGEN
  Company Number: US-AMGEN-USASP2025108840

PATIENT
  Age: 59 Year
  Sex: Female

DRUGS (6)
  1. PREDNISONE [Suspect]
     Active Substance: PREDNISONE
     Indication: Immunosuppressant drug therapy
     Route: 065
  2. ECULIZUMAB [Concomitant]
     Active Substance: ECULIZUMAB
  3. TACROLIMUS [Concomitant]
     Active Substance: TACROLIMUS
  4. RAPAMYCIN [Concomitant]
     Active Substance: SIROLIMUS
  5. BELATACEPT [Concomitant]
     Active Substance: BELATACEPT
  6. MYCOPHENOLATE MOFETIL [Concomitant]
     Active Substance: MYCOPHENOLATE MOFETIL

REACTIONS (2)
  - Klebsiella bacteraemia [Fatal]
  - Septic shock [Fatal]
